FAERS Safety Report 9476643 (Version 1)
Quarter: 2013Q3

REPORT INFORMATION
  Report Type: Spontaneous
  Country: US (occurrence: None)
  Receive Date: 20130823
  Receipt Date: 20130823
  Transmission Date: 20140515
  Serious: Yes (Life-Threatening, Hospitalization)
  Sender: FDA-Public Use
  Company Number: None

PATIENT
  Age: 5 Year
  Sex: Female
  Weight: 24.04 kg

DRUGS (1)
  1. HEPARIN LOCK FLUSH [Suspect]
     Dosage: DURING BLOOD DRAWS

REACTIONS (5)
  - Pyrexia [None]
  - Asthenia [None]
  - Respiratory distress [None]
  - Infection [None]
  - Blood disorder [None]
